FAERS Safety Report 17910824 (Version 4)
Quarter: 2020Q3

REPORT INFORMATION
  Report Type: Spontaneous
  Country: EG (occurrence: EG)
  Receive Date: 20200618
  Receipt Date: 20200909
  Transmission Date: 20201103
  Serious: Yes (Other)
  Sender: FDA-Public Use
  Company Number: EG-REGENERON PHARMACEUTICALS, INC.-2020-44592

PATIENT

DRUGS (1)
  1. EYLEA [Suspect]
     Active Substance: AFLIBERCEPT
     Indication: DIABETIC RETINAL OEDEMA
     Dosage: 1 DF, ONCE; BOTH EYES
     Route: 031
     Dates: start: 20200222, end: 20200222

REACTIONS (5)
  - Diabetic retinal oedema [Unknown]
  - Anterior chamber cell [Not Recovered/Not Resolved]
  - Blindness [Recovering/Resolving]
  - Anterior chamber flare [Not Recovered/Not Resolved]
  - Vitritis [Not Recovered/Not Resolved]

NARRATIVE: CASE EVENT DATE: 2020
